FAERS Safety Report 16985298 (Version 1)
Quarter: 2019Q4

REPORT INFORMATION
  Report Type: Spontaneous
  Country: BE (occurrence: BE)
  Receive Date: 20191101
  Receipt Date: 20191101
  Transmission Date: 20200122
  Serious: Yes (Other)
  Sender: FDA-Public Use
  Company Number: BE-OTONOMY INC.-2019OTO00004

PATIENT

DRUGS (2)
  1. CIPROFLOXACIN. [Suspect]
     Active Substance: CIPROFLOXACIN
     Route: 065
  2. SOTALOL. [Suspect]
     Active Substance: SOTALOL
     Route: 065

REACTIONS (2)
  - Drug interaction [Unknown]
  - Torsade de pointes [Unknown]
